FAERS Safety Report 7407273-1 (Version None)
Quarter: 2011Q2

REPORT INFORMATION
  Report Type: 
  Country: None (occurrence: None)
  Receive Date: 20110411
  Receipt Date: 20110330
  Transmission Date: 20111010
  Serious: Yes (Other)
  Sender: FDA-Public Use
  Company Number: PHHY2010ES26647

PATIENT
  Age: 77 Year
  Sex: Female

DRUGS (1)
  1. ZOMETA [Suspect]
     Indication: BREAST NEOPLASM
     Dosage: 4 MG, UNK
     Route: 042
     Dates: start: 20080101

REACTIONS (1)
  - OSTEONECROSIS OF JAW [None]
